FAERS Safety Report 17860224 (Version 1)
Quarter: 2020Q2

REPORT INFORMATION
  Report Type: Spontaneous
  Country: GR (occurrence: GR)
  Receive Date: 20200604
  Receipt Date: 20200604
  Transmission Date: 20200714
  Serious: Yes (Hospitalization, Other)
  Sender: FDA-Public Use
  Company Number: GR-SA-2020SA134769

PATIENT

DRUGS (4)
  1. ACETYLSALICYLIC ACID [Suspect]
     Active Substance: ASPIRIN
     Dosage: 100 MG
  2. FUROSEMIDE. [Suspect]
     Active Substance: FUROSEMIDE
     Route: 042
  3. FONDAPARINUX SODIUM. [Suspect]
     Active Substance: FONDAPARINUX SODIUM
     Dosage: 2.5 MG
     Route: 058
  4. CLOPIDOGREL BISULFATE. [Suspect]
     Active Substance: CLOPIDOGREL BISULFATE
     Dosage: 75 MG

REACTIONS (7)
  - Interruption of aortic arch [Recovering/Resolving]
  - Pericardial mass [Recovering/Resolving]
  - Pericardial haemorrhage [Recovering/Resolving]
  - Anuria [Recovering/Resolving]
  - Blood pressure systolic decreased [Recovering/Resolving]
  - Chest pain [Recovering/Resolving]
  - Cardiac disorder [Recovering/Resolving]
